FAERS Safety Report 6897303-8 (Version None)
Quarter: 2010Q3

REPORT INFORMATION
  Report Type: 
  Country: None (occurrence: None)
  Receive Date: 20100802
  Receipt Date: 20070512
  Transmission Date: 20110219
  Serious: Yes (Other)
  Sender: FDA-Public Use
  Company Number: US-PFIZER INC-2007018905

PATIENT
  Age: 91 Year
  Sex: Female
  Weight: 96.6 kg

DRUGS (2)
  1. LYRICA [Suspect]
     Indication: NEURALGIA
     Route: 048
  2. DARVOCET [Concomitant]

REACTIONS (1)
  - TREMOR [None]
